FAERS Safety Report 24201213 (Version 1)
Quarter: 2024Q3

REPORT INFORMATION
  Report Type: Spontaneous
  Country: FR (occurrence: FR)
  Receive Date: 20240812
  Receipt Date: 20240812
  Transmission Date: 20241017
  Serious: Yes (Hospitalization)
  Sender: MYLAN
  Company Number: None

PATIENT
  Age: 69 Year
  Sex: Female
  Weight: 78 kg

DRUGS (2)
  1. LETROZOLE [Suspect]
     Active Substance: LETROZOLE
     Indication: Breast cancer
     Dosage: 2.5 MILLIGRAM, QD (2.5 MG/DAY)
     Route: 048
     Dates: start: 20231021, end: 20240530
  2. RIBOCICLIB [Concomitant]
     Active Substance: RIBOCICLIB
     Dosage: UNK
     Route: 065

REACTIONS (1)
  - Hepatic cytolysis [Recovering/Resolving]

NARRATIVE: CASE EVENT DATE: 20240419
